FAERS Safety Report 4661223-X (Version None)
Quarter: 2005Q2

REPORT INFORMATION
  Report Type: 
  Country: None (occurrence: None)
  Receive Date: 20050420
  Receipt Date: 20050105
  Transmission Date: 20051028
  Serious: Yes (Hospitalization)
  Sender: FDA-Public Use
  Company Number: 200510163US

PATIENT
  Age: 70 Year
  Sex: Female

DRUGS (2)
  1. ALLEGRA [Suspect]
     Dosage: 180 MG QD PO
     Route: 048
     Dates: end: 20041101
  2. ALLEGRA [Suspect]

REACTIONS (1)
  - BACK PAIN [None]
